FAERS Safety Report 6987767-3 (Version None)
Quarter: 2010Q3

REPORT INFORMATION
  Report Type: 
  Country: None (occurrence: None)
  Receive Date: 20100830
  Receipt Date: 20100715
  Transmission Date: 20110219
  Serious: No
  Sender: FDA-Public Use
  Company Number: 2010S1000603

PATIENT
  Age: 59 Year
  Sex: Female

DRUGS (2)
  1. LIVALO [Suspect]
     Dosage: 2 MG;PO ; 2 MG;PO
     Route: 048
     Dates: start: 20100629, end: 20100713
  2. LIVALO [Suspect]
     Dosage: 2 MG;PO ; 2 MG;PO
     Route: 048
     Dates: start: 20100715

REACTIONS (2)
  - ADVERSE DRUG REACTION [None]
  - OEDEMA PERIPHERAL [None]
